FAERS Safety Report 4334760-5 (Version None)
Quarter: 2004Q2

REPORT INFORMATION
  Report Type: 
  Country: None (occurrence: None)
  Receive Date: 20040405
  Receipt Date: 20040317
  Transmission Date: 20050107
  Serious: Yes (Death)
  Sender: FDA-Public Use
  Company Number: A-US2003-02403

PATIENT
  Age: 2 Year
  Sex: Female
  Weight: 9.6 kg

DRUGS (8)
  1. TRACLEER [Suspect]
     Indication: PULMONARY HYPERTENSION
     Dosage: 15.62 MG, BID,; 15.62 MG, QD
  2. DILTIAZEM [Concomitant]
  3. COUMADIN [Concomitant]
  4. PULMICORT [Concomitant]
  5. NASONEX [Concomitant]
  6. ATROVENT [Concomitant]
  7. MULTIVITAMINS (ASCORBIC ACID, THIAMINE, HYDROCHLORIDE, RIBOFLAVIN, RET [Concomitant]
  8. FLAX SEED OIL [Concomitant]

REACTIONS (6)
  - ALANINE AMINOTRANSFERASE INCREASED [None]
  - ASPARTATE AMINOTRANSFERASE INCREASED [None]
  - BLOOD ALKALINE PHOSPHATASE INCREASED [None]
  - CHRONIC OBSTRUCTIVE AIRWAYS DISEASE [None]
  - NASOPHARYNGITIS [None]
  - RESPIRATORY FAILURE [None]
